FAERS Safety Report 24002954 (Version 2)
Quarter: 2024Q4

REPORT INFORMATION
  Report Type: Spontaneous
  Country: CA (occurrence: CA)
  Receive Date: 20240624
  Receipt Date: 20241108
  Transmission Date: 20250115
  Serious: Yes (Other)
  Sender: SANOFI AVENTIS
  Company Number: CA-SA-SAC20240617000387

PATIENT
  Age: 42 Year
  Sex: Female

DRUGS (1)
  1. TUBERSOL [Suspect]
     Active Substance: TUBERCULIN PURIFIED PROTEIN DERIVATIVE
     Indication: Tuberculin test
     Dosage: 0.1 ML
     Route: 023

REACTIONS (5)
  - Vaccination site infection [Recovered/Resolved]
  - Vaccination site pain [Recovered/Resolved]
  - Vaccination site vesicles [Recovered/Resolved]
  - Local reaction [Unknown]
  - Injection site vesicles [Unknown]
